FAERS Safety Report 9634217 (Version 1)
Quarter: 2013Q4

REPORT INFORMATION
  Report Type: Spontaneous
  Country: FR (occurrence: None)
  Receive Date: 20131017
  Receipt Date: 20131017
  Transmission Date: 20140711
  Serious: Yes (Hospitalization)
  Sender: FDA-Public Use
  Company Number: B0929409A

PATIENT
  Age: 50 Year
  Sex: Female

DRUGS (1)
  1. MICONAZOLE [Suspect]
     Indication: ORAL FUNGAL INFECTION
     Dosage: UNK/UNKNOWN/UNKNOWN

REACTIONS (3)
  - Acute generalised exanthematous pustulosis [None]
  - Myocarditis [None]
  - Epstein-Barr virus infection [None]
